FAERS Safety Report 7407084-7 (Version None)
Quarter: 2011Q2

REPORT INFORMATION
  Report Type: 
  Country: None (occurrence: None)
  Receive Date: 20110411
  Receipt Date: 20110407
  Transmission Date: 20111010
  Serious: Yes (Hospitalization)
  Sender: FDA-Public Use
  Company Number: NL-ABBOTT-11P-114-0717369-00

PATIENT
  Sex: Female

DRUGS (9)
  1. CALCIUM CARBONATE W/COLECALCIFEROL [Concomitant]
     Indication: OSTEOPOROSIS
     Dosage: 1.25G/400 IU; 1 UNIT DAILY
     Route: 048
  2. HUMIRA [Suspect]
     Indication: RHEUMATOID ARTHRITIS
     Route: 058
     Dates: start: 20080117, end: 20110401
  3. METHOTREXATE [Concomitant]
     Indication: RHEUMATOID ARTHRITIS
     Dosage: 2 UNITS ONCE WEEKLY
     Route: 048
  4. FOLIC ACID [Concomitant]
     Indication: VITAMIN SUPPLEMENTATION
     Dosage: 1 UNIT ONCE WEEKLY
     Route: 048
  5. PANTOPRAZOL EC [Concomitant]
     Indication: PROPHYLAXIS
  6. SUCRALFAAT [Concomitant]
     Indication: PRODUCT USED FOR UNKNOWN INDICATION
     Route: 048
  7. MESALAMINE [Concomitant]
     Indication: RHEUMATOID ARTHRITIS
     Dosage: 1 UNIT DAILY AS NEEDED
     Route: 054
  8. RISEDRONIC ACID [Concomitant]
     Indication: OSTEOPOROSIS
     Dosage: COATED, 1 UNIT ONCE WEEKLY
     Route: 048
  9. PANTOPRAZOL EC [Concomitant]
     Indication: GASTRIC DISORDER
     Dosage: 1 UNIT DAILY
     Route: 048

REACTIONS (2)
  - INFECTION [None]
  - MALAISE [None]
